FAERS Safety Report 12578521 (Version 1)
Quarter: 2016Q3

REPORT INFORMATION
  Report Type: Spontaneous
  Country: US (occurrence: None)
  Receive Date: 20160720
  Receipt Date: 20160720
  Transmission Date: 20161109
  Serious: No
  Sender: FDA-Public Use
  Company Number: None

PATIENT
  Age: 59 Year
  Sex: Female

DRUGS (4)
  1. SOVALDI [Suspect]
     Active Substance: SOFOSBUVIR
     Indication: HEPATITIS
     Route: 048
     Dates: start: 20160622
  2. MULTIVITAMIN [Concomitant]
     Active Substance: VITAMINS
  3. ZINC [Concomitant]
     Active Substance: ZINC\ZINC CHLORIDE
  4. ADVIL [Concomitant]
     Active Substance: IBUPROFEN

REACTIONS (1)
  - Headache [None]

NARRATIVE: CASE EVENT DATE: 2016
